FAERS Safety Report 7402471-5 (Version None)
Quarter: 2011Q2

REPORT INFORMATION
  Report Type: 
  Country: None (occurrence: None)
  Receive Date: 20110408
  Receipt Date: 20110328
  Transmission Date: 20111010
  Serious: Yes (Other)
  Sender: FDA-Public Use
  Company Number: PHHY2011DE11832

PATIENT
  Age: 42 Year
  Sex: Female
  Weight: 70 kg

DRUGS (1)
  1. CAFFEINE CITRATE,ERGOTAMINE TARTRATE [Suspect]

REACTIONS (5)
  - ERGOT POISONING [None]
  - FEMORAL ARTERIAL STENOSIS [None]
  - FEMORAL ARTERY OCCLUSION [None]
  - PULSE ABSENT [None]
  - PERIPHERAL COLDNESS [None]
